FAERS Safety Report 6200304-6 (Version None)
Quarter: 2009Q2

REPORT INFORMATION
  Report Type: 
  Country: None (occurrence: None)
  Receive Date: 20090522
  Receipt Date: 20090512
  Transmission Date: 20091009
  Serious: Yes (Other)
  Sender: FDA-Public Use
  Company Number: US-GILEAD-2009-0021950

PATIENT
  Age: 28 Year
  Sex: Female

DRUGS (4)
  1. VIREAD [Suspect]
     Route: 048
     Dates: start: 20040630
  2. EPIVIR [Concomitant]
     Route: 048
     Dates: start: 20040630
  3. REYATAZ [Concomitant]
     Route: 048
     Dates: start: 20040630
  4. NORVIR [Concomitant]
     Route: 048
     Dates: start: 20040630

REACTIONS (1)
  - ABORTION SPONTANEOUS [None]
